FAERS Safety Report 19205089 (Version 1)
Quarter: 2021Q2

REPORT INFORMATION
  Report Type: Spontaneous
  Country: US (occurrence: US)
  Receive Date: 20210503
  Receipt Date: 20210503
  Transmission Date: 20210717
  Serious: No
  Sender: FDA-Public Use
  Company Number: US-SA-2021SA143266

PATIENT
  Age: 33 Year
  Sex: Male

DRUGS (5)
  1. PENICILLIN [PENICILLIN NOS] [Concomitant]
     Active Substance: PENICILLIN
  2. DUPIXENT [Suspect]
     Active Substance: DUPILUMAB
     Indication: DERMATITIS ALLERGIC
     Dosage: UNK
     Route: 058
     Dates: start: 20210302
  3. CEPHALOSPORIN NOS [Concomitant]
     Active Substance: UNSPECIFIED INGREDIENT
  4. NAPROXEN. [Concomitant]
     Active Substance: NAPROXEN
  5. NIMODIPINE. [Concomitant]
     Active Substance: NIMODIPINE

REACTIONS (1)
  - Injection site reaction [Unknown]

NARRATIVE: CASE EVENT DATE: 20210423
